FAERS Safety Report 14911568 (Version 1)
Quarter: 2018Q2

REPORT INFORMATION
  Report Type: Report from Study
  Country: US (occurrence: US)
  Receive Date: 20180518
  Receipt Date: 20180518
  Transmission Date: 20180711
  Serious: No
  Sender: FDA-Public Use
  Company Number: PHEH2018US019052

PATIENT
  Sex: Female

DRUGS (1)
  1. OMNITROPE [Suspect]
     Active Substance: SOMATROPIN
     Indication: PRODUCT USED FOR UNKNOWN INDICATION
     Dosage: 1.2 MG, TIW
     Route: 058

REACTIONS (5)
  - Nasopharyngitis [Unknown]
  - Pharyngitis streptococcal [Unknown]
  - Pain [Unknown]
  - Cough [Unknown]
  - Headache [Unknown]
